FAERS Safety Report 6582008-3 (Version None)
Quarter: 2010Q1

REPORT INFORMATION
  Report Type: 
  Country: None (occurrence: None)
  Receive Date: 20100215
  Receipt Date: 20100208
  Transmission Date: 20100710
  Serious: Yes (Hospitalization, Disabling)
  Sender: FDA-Public Use
  Company Number: DE-MERCK-0911DEU00059

PATIENT
  Age: 75 Year
  Sex: Male
  Weight: 81 kg

DRUGS (6)
  1. HYZAAR [Suspect]
     Route: 048
     Dates: start: 20070101
  2. BISOPROLOL FUMARATE [Concomitant]
     Route: 048
     Dates: start: 20050101
  3. FLUVASTATIN SODIUM [Concomitant]
     Route: 048
     Dates: start: 20050101
  4. EZETIMIBE [Concomitant]
     Route: 048
     Dates: start: 20100101
  5. ASPIRIN [Concomitant]
     Route: 048
     Dates: start: 20100201
  6. PANTOPRAZOLE SODIUM [Concomitant]
     Route: 048
     Dates: start: 20100101

REACTIONS (1)
  - OSTEOLYSIS [None]
